FAERS Safety Report 20617514 (Version 1)
Quarter: 2022Q1

REPORT INFORMATION
  Report Type: Spontaneous
  Country: US (occurrence: None)
  Receive Date: 20220321
  Receipt Date: 20220321
  Transmission Date: 20220423
  Serious: Yes (Death, Other)
  Sender: FDA-Public Use
  Company Number: 2022A121201

PATIENT
  Sex: Female
  Weight: 72.6 kg

DRUGS (21)
  1. EVUSHELD [Suspect]
     Active Substance: CILGAVIMAB\TIXAGEVIMAB
     Indication: COVID-19 prophylaxis
     Dosage: 150.0MG ONCE/SINGLE ADMINISTRATION
     Route: 030
     Dates: start: 20220207, end: 20220207
  2. TESSALON [Concomitant]
     Active Substance: BENZONATATE
  3. TRAMADOL [Concomitant]
     Active Substance: TRAMADOL
  4. AZITHROMYCIN [Concomitant]
     Active Substance: AZITHROMYCIN
  5. LISINOPRIL [Concomitant]
     Active Substance: LISINOPRIL
  6. METFORMIN [Concomitant]
     Active Substance: METFORMIN HYDROCHLORIDE
  7. METOPROLOL [Concomitant]
     Active Substance: METOPROLOL
  8. PANTOPRAZOLE [Concomitant]
     Active Substance: PANTOPRAZOLE
  9. WARFARIN [Concomitant]
     Active Substance: WARFARIN
  10. PREDNISONE [Concomitant]
     Active Substance: PREDNISONE
  11. SIROLIMUS [Concomitant]
     Active Substance: SIROLIMUS
  12. VITAMIN D NOS [Concomitant]
     Active Substance: VITAMIN D NOS
  13. ROUSUVASTATIN [Concomitant]
  14. TACROLIMUS [Concomitant]
     Active Substance: TACROLIMUS
  15. BACTRIM [Concomitant]
     Active Substance: SULFAMETHOXAZOLE\TRIMETHOPRIM
  16. ASPIRIN [Concomitant]
     Active Substance: ASPIRIN
  17. MONTELUKAST [Concomitant]
     Active Substance: MONTELUKAST SODIUM
  18. TYLENOL [Concomitant]
     Active Substance: ACETAMINOPHEN
  19. VITAMINS [Concomitant]
     Active Substance: VITAMINS
  20. MAGNESIUM OXIDE [Concomitant]
     Active Substance: MAGNESIUM OXIDE
  21. TERAZOSIN [Concomitant]
     Active Substance: TERAZOSIN HYDROCHLORIDE

REACTIONS (6)
  - Cardiac arrest [Fatal]
  - Aspiration [Unknown]
  - Headache [Unknown]
  - Blood pressure increased [Unknown]
  - Asthenia [Unknown]
  - Vomiting [Unknown]
